FAERS Safety Report 7665025-1 (Version None)
Quarter: 2011Q3

REPORT INFORMATION
  Report Type: 
  Country: None (occurrence: None)
  Receive Date: 20110806
  Receipt Date: 20110331
  Transmission Date: 20111222
  Serious: No
  Sender: FDA-Public Use
  Company Number: US-ABBOTT-11P-124-0715544-00

PATIENT
  Sex: Female
  Weight: 88.076 kg

DRUGS (3)
  1. ASPIRIN [Concomitant]
     Indication: PRODUCT USED FOR UNKNOWN INDICATION
     Dosage: QHS
  2. NIASPAN [Suspect]
     Indication: TYPE IIA HYPERLIPIDAEMIA
     Dosage: 500MG AT BEDTIME
  3. CRESTOR [Concomitant]
     Indication: PRODUCT USED FOR UNKNOWN INDICATION
     Dosage: QHS

REACTIONS (2)
  - FLUSHING [None]
  - FEELING HOT [None]
